FAERS Safety Report 22773349 (Version 2)
Quarter: 2024Q3

REPORT INFORMATION
  Report Type: Spontaneous
  Country: US (occurrence: US)
  Receive Date: 20230801
  Receipt Date: 20240904
  Transmission Date: 20241017
  Serious: No
  Sender: MERCK
  Company Number: US-009507513-2307USA012166

PATIENT
  Age: 18 Year
  Sex: Male

DRUGS (1)
  1. WELIREG [Suspect]
     Active Substance: BELZUTIFAN
     Indication: Haemangioblastoma
     Dosage: 120 MILLIGRAM, DAILY (QD)
     Route: 048

REACTIONS (2)
  - Normocytic anaemia [Unknown]
  - Off label use [Unknown]
